FAERS Safety Report 15064728 (Version 2)
Quarter: 2018Q3

REPORT INFORMATION
  Report Type: Report from Study
  Country: CN (occurrence: CN)
  Receive Date: 20180625
  Receipt Date: 20180802
  Transmission Date: 20181010
  Serious: Yes (Other)
  Sender: FDA-Public Use
  Company Number: CN-ROCHE-2129070

PATIENT
  Sex: Male
  Weight: 45 kg

DRUGS (2)
  1. AVASTIN [Suspect]
     Active Substance: BEVACIZUMAB
     Indication: COLON CANCER
     Route: 041
     Dates: start: 20170803
  2. AVASTIN [Suspect]
     Active Substance: BEVACIZUMAB
     Route: 041
     Dates: start: 201806

REACTIONS (5)
  - Cholangitis [Recovered/Resolved]
  - Nasopharyngitis [Unknown]
  - Bile duct obstruction [Unknown]
  - Pyrexia [Unknown]
  - Liver function test abnormal [Unknown]
